FAERS Safety Report 9555155 (Version 1)
Quarter: 2013Q3

REPORT INFORMATION
  Report Type: Spontaneous
  Country: US (occurrence: None)
  Receive Date: 20130724
  Receipt Date: 20130724
  Transmission Date: 20140515
  Serious: Yes (Other)
  Sender: FDA-Public Use
  Company Number: PHEH2013US005783

PATIENT
  Age: 58 Year
  Sex: Female

DRUGS (2)
  1. GILENYA [Suspect]
     Route: 048
  2. AMPYRA [Suspect]
     Dates: end: 20130228

REACTIONS (3)
  - Balance disorder [None]
  - Migraine [None]
  - Visual impairment [None]
